FAERS Safety Report 24934623 (Version 1)
Quarter: 2025Q1

REPORT INFORMATION
  Report Type: Report from Study
  Country: US (occurrence: US)
  Receive Date: 20250206
  Receipt Date: 20250206
  Transmission Date: 20250409
  Serious: No
  Sender: EXELIXIS
  Company Number: US-EXELIXIS-EXL-2024-001240

PATIENT
  Sex: Female
  Weight: 81.388 kg

DRUGS (1)
  1. CABOMETYX [Suspect]
     Active Substance: CABOZANTINIB S-MALATE
     Indication: Bone cancer
     Dosage: 60 MG, QD (3 TABLETS OF 20 MG ONCE)
     Route: 048

REACTIONS (2)
  - Surgery [Unknown]
  - Off label use [Unknown]
